FAERS Safety Report 7540816-6 (Version None)
Quarter: 2011Q2

REPORT INFORMATION
  Report Type: 
  Country: None (occurrence: None)
  Receive Date: 20110610
  Receipt Date: 20101021
  Transmission Date: 20111010
  Serious: Yes (Other)
  Sender: FDA-Public Use
  Company Number: US-ROCHE-781380

PATIENT
  Age: 32 Year
  Sex: Female

DRUGS (6)
  1. RIBAVIRIN [Suspect]
     Route: 048
     Dates: start: 20080309, end: 20090825
  2. BLINDED GS-9190 [Suspect]
     Route: 048
     Dates: start: 20090309, end: 20090825
  3. IBUPROFEN [Concomitant]
     Indication: HEADACHE
     Dates: start: 20000101
  4. PEGINTERFERON ALFA-2A [Suspect]
     Dosage: DOSE: 25.7143 MCG
     Route: 058
     Dates: start: 20090309, end: 20090825
  5. ACETAMINOPHEN [Concomitant]
     Indication: HEADACHE
     Dates: start: 19890101
  6. LORAZEPAM [Concomitant]
     Indication: ANXIETY
     Dates: start: 20100511

REACTIONS (1)
  - ABORTION INDUCED [None]
